FAERS Safety Report 23776848 (Version 1)
Quarter: 2024Q2

REPORT INFORMATION
  Report Type: Report from Study
  Country: FR (occurrence: FR)
  Receive Date: 20240424
  Receipt Date: 20240424
  Transmission Date: 20240716
  Serious: Yes (Other)
  Sender: FDA-Public Use
  Company Number: FR-SUN PHARMACEUTICAL INDUSTRIES LTD-2024R1-442748

PATIENT

DRUGS (1)
  1. METHOTREXATE [Suspect]
     Active Substance: METHOTREXATE
     Indication: Lepromatous leprosy
     Dosage: 0.12-0.25 MG/KG BODY WEIGHT
     Route: 048

REACTIONS (2)
  - Disease recurrence [Unknown]
  - Therapy partial responder [Unknown]
